FAERS Safety Report 7618702-2 (Version None)
Quarter: 2011Q3

REPORT INFORMATION
  Report Type: 
  Country: None (occurrence: None)
  Receive Date: 20110718
  Receipt Date: 20110707
  Transmission Date: 20111222
  Serious: Yes (Hospitalization, Other)
  Sender: FDA-Public Use
  Company Number: US-ELI_LILLY_AND_COMPANY-US201107003004

PATIENT
  Sex: Female

DRUGS (17)
  1. FORTEO [Suspect]
     Indication: OSTEOPOROSIS
     Dosage: 20 UG, QD
     Dates: start: 20090801, end: 20110201
  2. TACROLIMUS [Concomitant]
     Dosage: 5 MG, 5/W
  3. DAPSONE [Concomitant]
     Dosage: 100 MG, QD
  4. ZOLOFT [Concomitant]
     Dosage: 50 MG, UNK
  5. VORICONAZOLE [Concomitant]
     Dosage: 200 MG, BID
  6. LOPRESSOR [Concomitant]
     Dosage: 12.5 DF, UNK
  7. VALCYTE [Concomitant]
     Dosage: 450 MG, UNK
  8. WARFARIN SODIUM [Concomitant]
     Dosage: 1 MG, QD
  9. CLONAZEPAM [Concomitant]
  10. XOPENEX [Concomitant]
  11. ZOFRAN [Concomitant]
     Dosage: 4 MG, TID
  12. PREDNISONE [Concomitant]
     Dosage: 5 MG, UNK
  13. TACROLIMUS [Concomitant]
     Dosage: 1 MG, 2/W
  14. LOVENOX [Concomitant]
     Dosage: 90 MG, UNK
  15. FERROUS SULFATE TAB [Concomitant]
     Dosage: 300 MG, QD
  16. OMEPRAZOLE [Concomitant]
     Dosage: 20 MG, BID
  17. HALDOL [Concomitant]
     Dosage: 0.25 MG, UNK

REACTIONS (5)
  - PELVIC FRACTURE [None]
  - BLOOD PARATHYROID HORMONE INCREASED [None]
  - INTERSTITIAL LUNG DISEASE [None]
  - LUNG TRANSPLANT [None]
  - PULMONARY FIBROSIS [None]
